FAERS Safety Report 6915300-0 (Version None)
Quarter: 2010Q3

REPORT INFORMATION
  Report Type: 
  Country: None (occurrence: None)
  Receive Date: 20100809
  Receipt Date: 20090916
  Transmission Date: 20110219
  Serious: No
  Sender: FDA-Public Use
  Company Number: US-ABBOTT-09P-163-0598119-00

PATIENT
  Sex: Male

DRUGS (7)
  1. DEPAKOTE ER [Suspect]
     Indication: CONVULSION
     Dosage: 1750MG AM AND 1500MG PM
     Route: 048
     Dates: start: 20060101, end: 20090911
  2. DEPAKOTE ER [Suspect]
     Indication: ABNORMAL BEHAVIOUR
  3. DILANTIN [Concomitant]
     Indication: CONVULSION
     Dosage: 230/DAY
  4. LAMOTRIGINE [Concomitant]
     Indication: CONVULSION
  5. LEVOTHROID [Concomitant]
     Indication: HYPOTHYROIDISM
     Route: 048
  6. LORAZEPAM [Concomitant]
     Indication: PRODUCT USED FOR UNKNOWN INDICATION
     Dosage: FOUR TIMES DAILY AND AS REQUIRED
  7. CELEXA [Concomitant]
     Indication: AFFECTIVE DISORDER
     Dosage: 40 DAILY

REACTIONS (3)
  - BELLIGERENCE [None]
  - BLOOD AMYLASE INCREASED [None]
  - SOMNOLENCE [None]
